FAERS Safety Report 23861407 (Version 3)
Quarter: 2024Q2

REPORT INFORMATION
  Report Type: Spontaneous
  Country: US (occurrence: US)
  Receive Date: 20240516
  Receipt Date: 20240523
  Transmission Date: 20240715
  Serious: Yes (Hospitalization)
  Sender: FDA-Public Use
  Company Number: US-ABBVIE-5760931

PATIENT
  Age: 72 Year
  Sex: Male
  Weight: 77 kg

DRUGS (2)
  1. VRAYLAR [Suspect]
     Active Substance: CARIPRAZINE
     Indication: Bipolar I disorder
     Dosage: FORM STRENGTH: 6 MILLIGRAM
     Route: 048
     Dates: start: 2022, end: 2023
  2. VRAYLAR [Suspect]
     Active Substance: CARIPRAZINE
     Indication: Bipolar I disorder
     Dosage: FORM STRENGTH: 6 MILLIGRAM
     Route: 048
     Dates: start: 202311, end: 20240328

REACTIONS (12)
  - Seizure [Not Recovered/Not Resolved]
  - Dementia [Not Recovered/Not Resolved]
  - Trismus [Not Recovered/Not Resolved]
  - Mania [Not Recovered/Not Resolved]
  - Confusional state [Not Recovered/Not Resolved]
  - Aggression [Not Recovered/Not Resolved]
  - Withdrawal syndrome [Unknown]
  - Panic attack [Unknown]
  - Dysphagia [Not Recovered/Not Resolved]
  - Aphasia [Not Recovered/Not Resolved]
  - Psychotic disorder [Not Recovered/Not Resolved]
  - Bruxism [Not Recovered/Not Resolved]

NARRATIVE: CASE EVENT DATE: 20231101
